FAERS Safety Report 15579216 (Version 1)
Quarter: 2018Q4

REPORT INFORMATION
  Report Type: Spontaneous
  Country: US (occurrence: US)
  Receive Date: 20181102
  Receipt Date: 20181102
  Transmission Date: 20190205
  Serious: Yes (Life-Threatening)
  Sender: FDA-Public Use
  Company Number: None

PATIENT
  Age: 34 Year
  Sex: Female
  Weight: 53.1 kg

DRUGS (1)
  1. PENICILLIN VK [Suspect]
     Active Substance: PENICILLIN V POTASSIUM
     Indication: INFECTION
     Route: 065

REACTIONS (2)
  - Rash generalised [None]
  - Dyspnoea [None]

NARRATIVE: CASE EVENT DATE: 20181101
